FAERS Safety Report 9015495 (Version 2)
Quarter: 2013Q1

REPORT INFORMATION
  Report Type: Spontaneous
  Country: JP (occurrence: None)
  Receive Date: 20130103
  Receipt Date: 20130329
  Transmission Date: 20140127
  Serious: Yes (Other)
  Sender: FDA-Public Use
  Company Number: ENT 2012-0181

PATIENT
  Sex: 0

DRUGS (1)
  1. COMTAN [Suspect]
     Route: 048

REACTIONS (2)
  - Pneumonia aspiration [None]
  - Dysphagia [None]
